FAERS Safety Report 5149066-4 (Version None)
Quarter: 2006Q4

REPORT INFORMATION
  Report Type: 
  Country: None (occurrence: None)
  Receive Date: 20061108
  Receipt Date: 20061107
  Transmission Date: 20070319
  Serious: No
  Sender: FDA-Public Use
  Company Number: 06H-163-0311033-00

PATIENT

DRUGS (1)
  1. DOBUTAMINE INJECTION (DOBUTAMINE HYDROCHLORIDE INJECTION) (DOBUTAMINE [Suspect]
     Dosage: 5-40 MCG/KG/MIN, INC DOSE AT 3-MIN INTERV, IV
     Route: 042

REACTIONS (1)
  - ATRIAL FIBRILLATION [None]
